FAERS Safety Report 5006303-4 (Version None)
Quarter: 2006Q2

REPORT INFORMATION
  Report Type: 
  Country: None (occurrence: None)
  Receive Date: 20060519
  Receipt Date: 20060511
  Transmission Date: 20061013
  Serious: Yes (Hospitalization, Disabling, Other)
  Sender: FDA-Public Use
  Company Number: 2006UW09299

PATIENT
  Age: 30476 Day
  Sex: Female
  Weight: 60.3 kg

DRUGS (8)
  1. NOLVADEX [Suspect]
     Indication: BREAST CANCER
     Route: 048
     Dates: end: 20030408
  2. ZYPREXA [Concomitant]
     Indication: SCHIZOPHRENIA
     Route: 048
  3. LIPITOR [Concomitant]
     Indication: HYPERCHOLESTEROLAEMIA
     Route: 048
     Dates: start: 20000526
  4. TOPROL-XL [Concomitant]
     Indication: HYPERTENSION
     Route: 048
  5. HYDROCHLOROTHIAZIDE [Concomitant]
     Indication: HYPERTENSION
     Route: 048
  6. LOTENSIN [Concomitant]
     Indication: HYPERTENSION
     Route: 048
  7. FOSAMAX [Concomitant]
     Indication: OSTEOPOROSIS
     Route: 048
     Dates: start: 19990601
  8. BENAZEPRIL HYDROCHLORIDE [Concomitant]
     Indication: HYPERTENSION
     Route: 048

REACTIONS (4)
  - DEHYDRATION [None]
  - FALL [None]
  - HIP FRACTURE [None]
  - RHABDOMYOLYSIS [None]
